FAERS Safety Report 13358840 (Version 6)
Quarter: 2023Q2

REPORT INFORMATION
  Report Type: Report from Study
  Country: DE (occurrence: DE)
  Receive Date: 20170322
  Receipt Date: 20230614
  Transmission Date: 20230721
  Serious: Yes (Other)
  Sender: FDA-Public Use
  Company Number: DE-BIOGEN-2017BI00374730

PATIENT
  Sex: Female

DRUGS (11)
  1. AVONEX PEN [Suspect]
     Active Substance: INTERFERON BETA-1A
     Indication: Multiple sclerosis
     Dosage: 30 MICROGRAM(S) EVERY WEEK
     Route: 050
     Dates: start: 20080401, end: 2015
  2. AVONEX PEN [Suspect]
     Active Substance: INTERFERON BETA-1A
  3. AVONEX PEN [Suspect]
     Active Substance: INTERFERON BETA-1A
  4. AVONEX PEN [Suspect]
     Active Substance: INTERFERON BETA-1A
  5. AVONEX [Suspect]
     Active Substance: INTERFERON BETA-1A
     Indication: Multiple sclerosis
     Route: 050
     Dates: start: 20080401, end: 2015
  6. AVONEX [Suspect]
     Active Substance: INTERFERON BETA-1A
  7. AVONEX [Suspect]
     Active Substance: INTERFERON BETA-1A
  8. AVONEX [Suspect]
     Active Substance: INTERFERON BETA-1A
  9. FOLIC ACID [Concomitant]
     Active Substance: FOLIC ACID
     Indication: Prophylaxis
     Route: 050
     Dates: start: 2016, end: 2016
  10. Ortho pregna [Concomitant]
     Indication: Prophylaxis
     Route: 050
     Dates: start: 2016, end: 201609
  11. IRON [Concomitant]
     Active Substance: IRON
     Indication: Iron deficiency
     Route: 050
     Dates: start: 2016, end: 2016

REACTIONS (2)
  - Umbilical cord abnormality [Recovered/Resolved]
  - Maternal exposure during pregnancy [Recovered/Resolved]
